FAERS Safety Report 7241467-3 (Version None)
Quarter: 2011Q1

REPORT INFORMATION
  Report Type: 
  Country: None (occurrence: None)
  Receive Date: 20110124
  Receipt Date: 20100812
  Transmission Date: 20110831
  Serious: Yes (Hospitalization)
  Sender: FDA-Public Use
  Company Number: GB-SOLVAY-00211000548

PATIENT
  Sex: Male

DRUGS (1)
  1. PERINDOPRIL ERBUMINE [Suspect]
     Indication: PRODUCT USED FOR UNKNOWN INDICATION
     Dosage: DAILY DOSE: 90 OR 110 MILLIGRAM(S), SINGLE
     Route: 048
     Dates: start: 20050101, end: 20050101

REACTIONS (2)
  - INTENTIONAL OVERDOSE [None]
  - BLOOD PRESSURE DECREASED [None]
